FAERS Safety Report 9887883 (Version 6)
Quarter: 2014Q3

REPORT INFORMATION
  Report Type: Report from Study
  Country: UA (occurrence: UA)
  Receive Date: 20140211
  Receipt Date: 20140923
  Transmission Date: 20150326
  Serious: Yes (Hospitalization)
  Sender: FDA-Public Use
  Company Number: UA-SANOFI-AVENTIS-2012SA058868

PATIENT
  Age: 27 Year
  Sex: Male
  Weight: 64 kg

DRUGS (1)
  1. TERIFLUNOMIDE [Suspect]
     Active Substance: TERIFLUNOMIDE
     Indication: MULTIPLE SCLEROSIS
     Dosage: DOSE:1 UNIT(S)
     Route: 048
     Dates: start: 20100825, end: 20120813

REACTIONS (2)
  - Condition aggravated [Not Recovered/Not Resolved]
  - Peptic ulcer [Recovered/Resolved]

NARRATIVE: CASE EVENT DATE: 20120811
